FAERS Safety Report 17102598 (Version 1)
Quarter: 2019Q4

REPORT INFORMATION
  Report Type: Spontaneous
  Country: US (occurrence: US)
  Receive Date: 20191106
  Receipt Date: 20191106
  Transmission Date: 20200122
  Serious: Yes (Death)
  Sender: FDA-Public Use
  Company Number: None

PATIENT
  Age: 52 Year
  Sex: Male

DRUGS (1)
  1. OCTREOTIDE 200MCG/M INJ [Suspect]
     Active Substance: OCTREOTIDE
     Indication: INTESTINAL OBSTRUCTION
     Dates: start: 20191031

REACTIONS (1)
  - Death [None]
